FAERS Safety Report 7502825-2 (Version None)
Quarter: 2011Q2

REPORT INFORMATION
  Report Type: 
  Country: None (occurrence: None)
  Receive Date: 20110525
  Receipt Date: 20100830
  Transmission Date: 20111010
  Serious: No
  Sender: FDA-Public Use
  Company Number: US-NOVEN-ALL1-2010-04567

PATIENT
  Sex: Female
  Weight: 26.304 kg

DRUGS (2)
  1. DAYTRANA [Suspect]
     Dosage: 30 MG, 1X/DAY:QD
     Route: 062
     Dates: start: 20100827, end: 20100828
  2. PREVACID [Concomitant]
     Dosage: 15 MG, 1X/DAY:QD
     Route: 048
     Dates: start: 20090101

REACTIONS (4)
  - APPLICATION SITE ERYTHEMA [None]
  - APPLICATION SITE SWELLING [None]
  - APPLICATION SITE PAIN [None]
  - APPLICATION SITE PRURITUS [None]
